FAERS Safety Report 19456314 (Version 1)
Quarter: 2021Q2

REPORT INFORMATION
  Report Type: Spontaneous
  Country: US (occurrence: US)
  Receive Date: 20210624
  Receipt Date: 20210624
  Transmission Date: 20210717
  Serious: Yes (Life-Threatening)
  Sender: FDA-Public Use
  Company Number: None

PATIENT
  Age: 41 Year
  Sex: Female
  Weight: 94.95 kg

DRUGS (1)
  1. HUMIRA [Suspect]
     Active Substance: ADALIMUMAB
     Indication: HIDRADENITIS
     Dosage: ?          OTHER FREQUENCY:ONCE WEEKLY;?
     Route: 058
     Dates: start: 20210505, end: 20210604

REACTIONS (7)
  - Swelling [None]
  - Hypersensitivity [None]
  - Throat tightness [None]
  - Pancreatitis acute [None]
  - Oropharyngeal pain [None]
  - Neck pain [None]
  - Abdominal pain [None]

NARRATIVE: CASE EVENT DATE: 20210604
